FAERS Safety Report 24129265 (Version 2)
Quarter: 2024Q3

REPORT INFORMATION
  Report Type: Spontaneous
  Country: CN (occurrence: CN)
  Receive Date: 20240723
  Receipt Date: 20240725
  Transmission Date: 20241017
  Serious: No
  Sender: MERCK
  Company Number: CN-009507513-2407CHN012199

PATIENT
  Age: 77 Year
  Sex: Female
  Weight: 60 kg

DRUGS (1)
  1. CILASTATIN SODIUM\IMIPENEM [Suspect]
     Active Substance: CILASTATIN SODIUM\IMIPENEM
     Indication: Anti-infective therapy
     Dosage: 500 MILLIGRAM, Q12H
     Route: 041
     Dates: start: 20240627, end: 20240628

REACTIONS (1)
  - Disorganised speech [Recovering/Resolving]

NARRATIVE: CASE EVENT DATE: 20240627
